FAERS Safety Report 17894550 (Version 1)
Quarter: 2020Q2

REPORT INFORMATION
  Report Type: Report from Study
  Country: UA (occurrence: UA)
  Receive Date: 20200615
  Receipt Date: 20200615
  Transmission Date: 20200714
  Serious: Yes (Hospitalization)
  Sender: FDA-Public Use
  Company Number: UA-ROCHE-2621004

PATIENT
  Age: 69 Year
  Sex: Male
  Weight: 65 kg

DRUGS (22)
  1. ADEMETIONINE [Concomitant]
     Active Substance: ADEMETIONINE
     Indication: JAUNDICE
     Route: 065
     Dates: start: 20200128, end: 20200201
  2. BISOPROLOL [Concomitant]
     Active Substance: BISOPROLOL
     Indication: MYOCARDIAL ISCHAEMIA
  3. DIOSMIN [Concomitant]
     Active Substance: DIOSMIN
     Indication: PERIPHERAL VENOUS DISEASE
     Route: 065
  4. STEROFUNDIN ISO [Concomitant]
     Dosage: SUBSEQUENTLY, RECEIVED ON 28/DEC/2019, 17/JAN/2020.
     Route: 065
     Dates: start: 20191227
  5. ORNITHINE ASPARTATE [Concomitant]
     Active Substance: ORNITHINE ASPARTATE
     Indication: JAUNDICE
     Route: 065
     Dates: start: 20200128, end: 20200201
  6. FERROUS SULFATE. [Concomitant]
     Active Substance: FERROUS SULFATE
     Indication: ANAEMIA
     Route: 065
     Dates: start: 20191227
  7. DEXAMETASON [DEXAMETHASONE] [Concomitant]
     Active Substance: DEXAMETHASONE
     Dosage: SUBSEQUENTLY, RECEIVED ON 28/DEC/2019, 17/JAN/2020, 18/JAN/2020.
     Route: 065
     Dates: start: 20191227
  8. RIBOXIN [INOSINE] [Concomitant]
     Indication: JAUNDICE
     Route: 065
     Dates: start: 20200128, end: 20200201
  9. FERROUS SULFATE. [Concomitant]
     Active Substance: FERROUS SULFATE
     Route: 065
     Dates: start: 20191228
  10. ONDANSETRON [Concomitant]
     Active Substance: ONDANSETRON
     Dosage: SUBSEQUENTLY, RECEIVED ON 17/JAN/2020, 18/JAN/2020.
     Route: 065
     Dates: start: 20191227
  11. GLUCOSE [Concomitant]
     Active Substance: DEXTROSE
     Dosage: SUBSEQUENTLY, RECEIVED ON 28/DEC/2019, 17/JAN/2020.
     Route: 065
     Dates: start: 20191227
  12. GLUCOSE [Concomitant]
     Active Substance: DEXTROSE
     Route: 065
     Dates: start: 20200128
  13. PANTOPRAZOLE [Concomitant]
     Active Substance: PANTOPRAZOLE
     Dosage: SUBSEQUENTLY, RECEIVED ON 28/DEC/2019, 17/JAN/2020, 18/JAN/2020.
     Route: 065
     Dates: start: 20191227
  14. PREGABALIN. [Concomitant]
     Active Substance: PREGABALIN
     Indication: NEUROPATHY PERIPHERAL
     Route: 065
     Dates: start: 20200117
  15. RIVAROXABAN [Concomitant]
     Active Substance: RIVAROXABAN
     Indication: ATRIAL FIBRILLATION
  16. CAPECITABINE. [Suspect]
     Active Substance: CAPECITABINE
     Indication: ADENOCARCINOMA GASTRIC
     Route: 048
     Dates: start: 20191227, end: 20200125
  17. REOSORBILACT [Concomitant]
     Active Substance: CALCIUM CHLORIDE\MAGNESIUM CHLORIDE\POTASSIUM CHLORIDE\SODIUM CHLORIDE\SODIUM LACTATE\SORBITOL
     Indication: JAUNDICE
     Dosage: 200 (UNIT NOT REPORTED)
     Route: 065
     Dates: start: 20200128, end: 20200201
  18. ONDANSETRON [Concomitant]
     Active Substance: ONDANSETRON
     Route: 065
     Dates: start: 20191228
  19. CLEMASTINE [Concomitant]
     Active Substance: CLEMASTINE
     Dosage: SUBSEQUENTLY, RECEIVED ON 17/JAN/2020
     Route: 065
     Dates: start: 20191227
  20. NACL [Concomitant]
     Active Substance: SODIUM CHLORIDE
     Dosage: SUBSEQUENTLY, RECEIVED ON 28/DEC/2019, 17/JAN/2020.
     Route: 065
     Dates: start: 20191227
  21. RINGER^S SOLUTION [CALCIUM CHLORIDE;POTASSIUM CHLORIDE;SODIUM CHLORIDE [Concomitant]
     Route: 065
     Dates: start: 20200121, end: 20200201
  22. EUPHYLLIN [AMINOPHYLLINE] [Concomitant]
     Indication: JAUNDICE
     Route: 065
     Dates: start: 20200128, end: 20200201

REACTIONS (1)
  - Jaundice cholestatic [Recovered/Resolved]

NARRATIVE: CASE EVENT DATE: 20200125
